FAERS Safety Report 5854602-6 (Version None)
Quarter: 2008Q3

REPORT INFORMATION
  Report Type: 
  Country: None (occurrence: None)
  Receive Date: 20080822
  Receipt Date: 20071016
  Transmission Date: 20090109
  Serious: No
  Sender: FDA-Public Use
  Company Number: US-ABBOTT-07P-163-0421495-00

PATIENT
  Age: 67 Year
  Sex: Male
  Weight: 99.426 kg

DRUGS (5)
  1. SYNTHROID [Suspect]
     Indication: BASEDOW'S DISEASE
     Route: 048
     Dates: end: 20040101
  2. SYNTHROID [Suspect]
     Route: 048
     Dates: start: 20040101, end: 20071014
  3. SYNTHROID [Suspect]
     Route: 048
     Dates: start: 20071016
  4. ATENOLOL [Concomitant]
     Indication: DRUG USE FOR UNKNOWN INDICATION
     Route: 048
  5. ASPIRIN AND DIPYRIDAMOLE [Concomitant]
     Indication: DRUG USE FOR UNKNOWN INDICATION
     Route: 048

REACTIONS (6)
  - FLUSHING [None]
  - GAIT DISTURBANCE [None]
  - HEADACHE [None]
  - OCULAR HYPERAEMIA [None]
  - PAIN [None]
  - PAIN IN EXTREMITY [None]
